FAERS Safety Report 4490974-5 (Version None)
Quarter: 2004Q3

REPORT INFORMATION
  Report Type: 
  Country: None (occurrence: None)
  Receive Date: 20040927
  Receipt Date: 20040809
  Transmission Date: 20050211
  Serious: No
  Sender: FDA-Public Use
  Company Number: USA040874930

PATIENT
  Age: 11 Year
  Sex: Female
  Weight: 68 kg

DRUGS (2)
  1. STRATTERA [Suspect]
     Dosage: 80 MG/1 DAY
     Dates: start: 20040805
  2. SULFAMETHOXAZOLE + TRIMETHOPRIM [Concomitant]

REACTIONS (1)
  - HYPERSOMNIA [None]
